FAERS Safety Report 8959785 (Version 2)
Quarter: 2013Q1

REPORT INFORMATION
  Report Type: Spontaneous
  Country: US (occurrence: US)
  Receive Date: 20121212
  Receipt Date: 20130109
  Transmission Date: 20140127
  Serious: Yes (Other)
  Sender: FDA-Public Use
  Company Number: PHEH2012US024247

PATIENT
  Age: 58 Year
  Sex: Female
  Weight: 90 kg

DRUGS (20)
  1. ZOMETA [Suspect]
     Indication: BREAST CANCER METASTATIC
     Dosage: 2 MG, EVERY 4 WEEKS
     Route: 042
  2. ZOMETA [Suspect]
     Dosage: 4 MG, EVERY 4 WEEKS
     Route: 042
     Dates: start: 20040721, end: 20101020
  3. LOSARTAN POTASSIUM [Suspect]
  4. NIASPAN [Concomitant]
     Dosage: 500 MG, QD
     Route: 048
  5. DETROL [Concomitant]
     Dosage: 4 MG, QD
     Route: 048
  6. EFFEXOR [Concomitant]
     Dosage: 37.5 MG, QD
     Route: 048
  7. ATARAX [Concomitant]
  8. THYROXINE [Concomitant]
  9. FLONASE [Concomitant]
  10. ASPIRIN [Concomitant]
     Dosage: 81 MG, UNK
  11. CALCIUM [Concomitant]
  12. VITAMIN D [Concomitant]
  13. TESTOSTERONE [Concomitant]
  14. AMBIEN [Concomitant]
     Dosage: 5 MG, QHS
     Route: 048
  15. HIDROCLOROTIAZIDE [Concomitant]
     Dosage: 25 MG, QD
     Route: 048
  16. ALLEGRA [Concomitant]
     Route: 048
  17. CELEBREX [Concomitant]
     Dosage: 200 MG, QD
     Route: 048
  18. FEMARA [Concomitant]
     Dosage: 2.5 MG, QD
     Route: 048
  19. BENADRYL [Concomitant]
  20. SOLUCORTEF [Concomitant]

REACTIONS (6)
  - Osteonecrosis of jaw [Unknown]
  - Rash macular [Recovered/Resolved]
  - Urticaria [Recovered/Resolved]
  - Pruritus [Recovered/Resolved]
  - Blood pressure abnormal [Unknown]
  - Hypersensitivity [Unknown]
